FAERS Safety Report 7916270-9 (Version None)
Quarter: 2011Q4

REPORT INFORMATION
  Report Type: 
  Country: None (occurrence: None)
  Receive Date: 20111116
  Receipt Date: 20111107
  Transmission Date: 20120403
  Serious: No
  Sender: FDA-Public Use
  Company Number: US-BIOGENIDEC-2011BI042569

PATIENT
  Age: 42 Year
  Sex: Female

DRUGS (1)
  1. TYSABRI [Suspect]
     Indication: MULTIPLE SCLEROSIS
     Route: 042
     Dates: start: 20110427

REACTIONS (9)
  - JOINT STIFFNESS [None]
  - BONE PAIN [None]
  - PARAESTHESIA [None]
  - MEMORY IMPAIRMENT [None]
  - SOMNOLENCE [None]
  - JOINT SWELLING [None]
  - HYPOAESTHESIA [None]
  - PAIN IN EXTREMITY [None]
  - ARTHRALGIA [None]
